FAERS Safety Report 12301490 (Version 1)
Quarter: 2016Q2

REPORT INFORMATION
  Report Type: Spontaneous
  Country: IE (occurrence: IE)
  Receive Date: 20160425
  Receipt Date: 20160425
  Transmission Date: 20160815
  Serious: Yes (Hospitalization)
  Sender: FDA-Public Use
  Company Number: IE-PFIZER INC-2016227578

PATIENT
  Age: 44 Year
  Sex: Female

DRUGS (2)
  1. SULFASALAZINE. [Suspect]
     Active Substance: SULFASALAZINE
     Indication: COLITIS ULCERATIVE
     Dosage: UNK
  2. ADALIMUMAB [Concomitant]
     Active Substance: ADALIMUMAB
     Indication: COLITIS ULCERATIVE
     Dosage: UNK

REACTIONS (1)
  - Eosinophilic pneumonia acute [Recovering/Resolving]
